FAERS Safety Report 8168870-1 (Version None)
Quarter: 2012Q1

REPORT INFORMATION
  Report Type: 
  Country: None (occurrence: None)
  Receive Date: 20120227
  Receipt Date: 20120214
  Transmission Date: 20120608
  Serious: Yes (Hospitalization)
  Sender: FDA-Public Use
  Company Number: HU-MYLANLABS-2012S1003541

PATIENT
  Sex: Male

DRUGS (4)
  1. FUROSEMIDE [Suspect]
     Indication: OEDEMA
     Route: 065
  2. POTASSIUM CHLORIDE [Interacting]
     Indication: OEDEMA
     Route: 065
  3. SPIRONOLACTONE [Interacting]
     Indication: OEDEMA
     Route: 065
  4. SPIRONOLACTONE [Interacting]
     Dosage: INCREASED DOSE
     Route: 065

REACTIONS (3)
  - RENAL IMPAIRMENT [None]
  - HYPERKALAEMIA [None]
  - HYPOTENSION [None]
